FAERS Safety Report 8006318-8 (Version None)
Quarter: 2011Q4

REPORT INFORMATION
  Report Type: 
  Country: None (occurrence: None)
  Receive Date: 20111226
  Receipt Date: 20111220
  Transmission Date: 20120403
  Serious: Yes (Death)
  Sender: FDA-Public Use
  Company Number: PHEH2011US012396

PATIENT
  Sex: Female

DRUGS (7)
  1. CALCIUM [Concomitant]
     Route: 065
  2. REBETOL [Concomitant]
     Route: 065
  3. GLEEVEC [Suspect]
     Indication: CHRONIC MYELOID LEUKAEMIA
     Dosage: 400 MG, DAILY
     Route: 048
     Dates: start: 20070216
  4. RISPERIDONE [Concomitant]
  5. VITAMIN B-12 [Concomitant]
     Route: 065
  6. VITAMIN D [Concomitant]
     Route: 065
  7. ADVAIR DISKUS 100/50 [Concomitant]
     Route: 065

REACTIONS (1)
  - DEATH [None]
